FAERS Safety Report 21251344 (Version 1)
Quarter: 2022Q3

REPORT INFORMATION
  Report Type: Spontaneous
  Country: US (occurrence: US)
  Receive Date: 20220825
  Receipt Date: 20220825
  Transmission Date: 20221027
  Serious: No
  Sender: FDA-Public Use
  Company Number: US-SUN PHARMACEUTICAL INDUSTRIES LTD-2022R1-338694

PATIENT
  Sex: Female

DRUGS (2)
  1. ISOTRETINOIN [Suspect]
     Active Substance: ISOTRETINOIN
     Indication: Product used for unknown indication
     Dosage: UNK
     Route: 065
  2. UNITUXIN [Concomitant]
     Active Substance: DINUTUXIMAB
     Indication: Neuroblastoma
     Dosage: UNK
     Route: 042

REACTIONS (2)
  - Mental status changes [Recovered/Resolved]
  - Aggression [Recovered/Resolved]
